FAERS Safety Report 25629043 (Version 1)
Quarter: 2025Q3

REPORT INFORMATION
  Report Type: Spontaneous
  Country: US (occurrence: US)
  Receive Date: 20250731
  Receipt Date: 20250731
  Transmission Date: 20251021
  Serious: Yes (Hospitalization)
  Sender: SANOFI AVENTIS
  Company Number: US-SA-2025SA218604

PATIENT
  Age: 54 Year
  Sex: Male

DRUGS (2)
  1. REZUROCK [Suspect]
     Active Substance: BELUMOSUDIL
     Indication: Chronic myeloid leukaemia
     Dosage: 200 MG, QD
     Route: 048
     Dates: start: 20230802
  2. TACROLIMUS [Suspect]
     Active Substance: TACROLIMUS

REACTIONS (4)
  - Rhinovirus infection [Unknown]
  - Respiratory disorder [Unknown]
  - Photosensitivity reaction [Unknown]
  - Product use in unapproved indication [Unknown]

NARRATIVE: CASE EVENT DATE: 20230802
